FAERS Safety Report 21094562 (Version 1)
Quarter: 2022Q3

REPORT INFORMATION
  Report Type: Spontaneous
  Country: US (occurrence: None)
  Receive Date: 20220716
  Receipt Date: 20220716
  Transmission Date: 20221026
  Serious: Yes (Hospitalization)
  Sender: FDA-Public Use
  Company Number: None

PATIENT
  Age: 40 Year
  Sex: Female
  Weight: 62.4 kg

DRUGS (2)
  1. PEMBROLIZUMAB [Suspect]
     Active Substance: PEMBROLIZUMAB
     Dates: end: 20220615
  2. SPRYCEL [Suspect]
     Active Substance: DASATINIB
     Dates: end: 20220615

REACTIONS (3)
  - Muscle spasms [None]
  - Diarrhoea [None]
  - Gastrointestinal viral infection [None]

NARRATIVE: CASE EVENT DATE: 20220615
